FAERS Safety Report 9815806 (Version 2)
Quarter: 2014Q1

REPORT INFORMATION
  Report Type: Spontaneous
  Country: US (occurrence: US)
  Receive Date: 20140114
  Receipt Date: 20140114
  Transmission Date: 20141002
  Serious: Yes (Hospitalization, Other)
  Sender: FDA-Public Use
  Company Number: US-ASTELLAS-2013US013036

PATIENT
  Age: 86 Year
  Sex: Male
  Weight: 65 kg

DRUGS (1)
  1. XTANDI [Suspect]
     Indication: PROSTATE CANCER METASTATIC
     Dosage: 160 MG, UID/QD
     Route: 048
     Dates: start: 20130401, end: 201312

REACTIONS (16)
  - Basal cell carcinoma [Unknown]
  - Meningioma benign [Unknown]
  - Knee operation [Unknown]
  - Skin mass [Recovering/Resolving]
  - Prostatic operation [None]
  - Local swelling [Recovered/Resolved]
  - Convulsion [Recovered/Resolved]
  - Blood cholesterol increased [Unknown]
  - Rash [Recovering/Resolving]
  - Constipation [Unknown]
  - Scrotal oedema [Recovering/Resolving]
  - Oedema peripheral [Unknown]
  - Dizziness [Unknown]
  - Fatigue [Unknown]
  - Hypertension [Unknown]
  - Prostatic specific antigen increased [Unknown]
